FAERS Safety Report 5771880-2 (Version None)
Quarter: 2008Q2

REPORT INFORMATION
  Report Type: 
  Country: None (occurrence: None)
  Receive Date: 20080613
  Receipt Date: 20080602
  Transmission Date: 20081010
  Serious: Yes (Hospitalization)
  Sender: FDA-Public Use
  Company Number: B0523934A

PATIENT
  Age: 49 Year
  Sex: Female

DRUGS (6)
  1. AUGMENTIN '125' [Suspect]
     Route: 065
     Dates: start: 20080408, end: 20080408
  2. PROPOFOL [Suspect]
     Indication: PREMEDICATION
     Route: 065
     Dates: start: 20080408, end: 20080408
  3. SUFENTANIL CITRATE [Suspect]
     Indication: PREMEDICATION
     Route: 065
     Dates: start: 20080408, end: 20080408
  4. SEVORANE [Suspect]
     Indication: PREMEDICATION
     Route: 055
     Dates: start: 20080408, end: 20080408
  5. HYPNOVEL [Suspect]
     Indication: PREMEDICATION
     Route: 065
     Dates: start: 20080408, end: 20080408
  6. ULTRACET [Suspect]
     Indication: POSTOPERATIVE CARE
     Dosage: 3TAB SINGLE DOSE
     Route: 048
     Dates: start: 20080409, end: 20080409

REACTIONS (6)
  - ABDOMINAL PAIN [None]
  - GLOMERULONEPHROPATHY [None]
  - HYPERTENSION [None]
  - OEDEMA [None]
  - RENAL FAILURE ACUTE [None]
  - VOMITING [None]
